FAERS Safety Report 8255290-4 (Version None)
Quarter: 2012Q2

REPORT INFORMATION
  Report Type: 
  Country: None (occurrence: None)
  Receive Date: 20120403
  Receipt Date: 20120326
  Transmission Date: 20120825
  Serious: Yes (Hospitalization)
  Sender: FDA-Public Use
  Company Number: SG-BRISTOL-MYERS SQUIBB COMPANY-16451890

PATIENT
  Age: 48 Year
  Sex: Female
  Weight: 49 kg

DRUGS (6)
  1. OMEPRAZOLE [Concomitant]
  2. SPIRONOLACTONE [Concomitant]
     Dates: start: 20120208
  3. DULCOLAX [Concomitant]
     Dates: start: 20120221
  4. LACTULOSE [Concomitant]
     Dates: start: 20120208
  5. PACLITAXEL [Suspect]
     Indication: GASTRIC CANCER
     Dosage: LAST: 8FEB12
     Route: 042
     Dates: start: 20110906
  6. SENNA [Concomitant]
     Dates: start: 20120208

REACTIONS (2)
  - INTESTINAL OBSTRUCTION [None]
  - INTESTINAL ISCHAEMIA [None]
